FAERS Safety Report 8512370-3 (Version None)
Quarter: 2012Q3

REPORT INFORMATION
  Report Type: 
  Country: None (occurrence: None)
  Receive Date: 20120716
  Receipt Date: 20120710
  Transmission Date: 20120928
  Serious: No
  Sender: FDA-Public Use
  Company Number: US-009507513-1110USA00113

PATIENT

DRUGS (1)
  1. SINGULAIR [Suspect]
     Indication: DYSPNOEA
     Dosage: 10 MG, QD
     Route: 048
     Dates: start: 20110622, end: 20110623

REACTIONS (4)
  - INSOMNIA [None]
  - HYPOAESTHESIA [None]
  - PARAESTHESIA [None]
  - PAIN [None]
